FAERS Safety Report 4352259-7 (Version None)
Quarter: 2004Q2

REPORT INFORMATION
  Report Type: 
  Country: None (occurrence: None)
  Receive Date: 20040427
  Receipt Date: 20030415
  Transmission Date: 20050107
  Serious: Yes (Other)
  Sender: FDA-Public Use
  Company Number: WAES0304USA01486

PATIENT
  Sex: Male

DRUGS (2)
  1. SINGULAIR [Suspect]
     Indication: COUGH
     Dosage: PO
     Route: 048
  2. METHOTREXATE [Concomitant]

REACTIONS (1)
  - EAR INFECTION [None]
